FAERS Safety Report 4400758-1 (Version None)
Quarter: 2004Q3

REPORT INFORMATION
  Report Type: 
  Country: None (occurrence: None)
  Receive Date: 20040907
  Receipt Date: 20020206
  Transmission Date: 20050211
  Serious: No
  Sender: FDA-Public Use
  Company Number: US-BRISTOL-MYERS SQUIBB COMPANY-11713641

PATIENT
  Age: 68 Year
  Sex: Male
  Weight: 122 kg

DRUGS (16)
  1. COUMADIN [Suspect]
     Indication: CEREBROVASCULAR ACCIDENT
     Dosage: DOSE RANGE: 12.5-10 MG.  12.5 MG ON M+TH, 10 MG ALL OTHER DAYS. JUL-03:TWO 5 MG TABS.
     Route: 048
     Dates: start: 20010901
  2. ISORDIL [Concomitant]
     Dates: start: 19940101
  3. LOPID [Concomitant]
     Dates: start: 19980101
  4. WELCHOL [Concomitant]
  5. THEO-DUR [Concomitant]
     Dosage: DURATION OF THERAPY: YEARS.
  6. LASIX [Concomitant]
     Dosage: DURATION OF THERAPY: YEARS.
  7. MICRO-K [Concomitant]
  8. COZAAR [Concomitant]
  9. DOCUSATE [Concomitant]
  10. PREVACID [Concomitant]
  11. ASPIRIN [Concomitant]
     Dosage: DURATION OF THERAPY: YEARS.
  12. HUMULIN 70/30 [Concomitant]
  13. INSULIN [Concomitant]
     Dosage: DURATION OF THERAPY: ^COUPLE OF YEARS^
  14. ZETIA [Concomitant]
     Indication: BLOOD CHOLESTEROL INCREASED
     Dosage: 10 MG TABLETS
     Route: 048
     Dates: start: 20030701
  15. ISO-BID [Concomitant]
  16. ZOLOFT [Concomitant]

REACTIONS (4)
  - INTERNATIONAL NORMALISED RATIO INCREASED [None]
  - PRURITUS [None]
  - RASH MACULAR [None]
  - SKIN BURNING SENSATION [None]
